FAERS Safety Report 7997613-7 (Version None)
Quarter: 2011Q4

REPORT INFORMATION
  Report Type: 
  Country: None (occurrence: None)
  Receive Date: 20111221
  Receipt Date: 20111219
  Transmission Date: 20120403
  Serious: Yes (Other)
  Sender: FDA-Public Use
  Company Number: US-JNJFOC-20111111511

PATIENT
  Sex: Female
  Weight: 49.9 kg

DRUGS (5)
  1. BENADRYL [Suspect]
     Indication: URTICARIA
     Route: 065
  2. CLARITIN [Interacting]
     Indication: SEASONAL ALLERGY
     Route: 048
     Dates: start: 20110501, end: 20111101
  3. CLARITIN [Interacting]
     Indication: URTICARIA
     Route: 048
     Dates: start: 20110501, end: 20111101
  4. BENADRYL [Suspect]
     Route: 065
  5. PREDNISONE TAB [Concomitant]
     Indication: PRODUCT USED FOR UNKNOWN INDICATION
     Route: 065

REACTIONS (5)
  - ANXIETY [None]
  - DRUG INTERACTION [None]
  - HALLUCINATION [None]
  - TREMOR [None]
  - PSYCHOMOTOR HYPERACTIVITY [None]
